FAERS Safety Report 8234176-5 (Version None)
Quarter: 2012Q1

REPORT INFORMATION
  Report Type: 
  Country: None (occurrence: None)
  Receive Date: 20120326
  Receipt Date: 20120322
  Transmission Date: 20120608
  Serious: No
  Sender: FDA-Public Use
  Company Number: US-TEVA-329529USA

PATIENT
  Sex: Female
  Weight: 67.192 kg

DRUGS (3)
  1. AZILECT [Suspect]
     Indication: PARKINSON'S DISEASE
     Dosage: 1 MILLIGRAM;
     Route: 048
     Dates: start: 20120101
  2. SINEMET [Concomitant]
  3. LIPITOR [Concomitant]

REACTIONS (1)
  - ALOPECIA [None]
